FAERS Safety Report 9745885 (Version 2)
Quarter: 2014Q1

REPORT INFORMATION
  Report Type: Spontaneous
  Country: IN (occurrence: None)
  Receive Date: 20131205
  Receipt Date: 20140224
  Transmission Date: 20141002
  Serious: Yes (Other)
  Sender: FDA-Public Use
  Company Number: CO-OR-IN-2013-208

PATIENT
  Sex: 0

DRUGS (5)
  1. PREDNISOLONE (PREDNISOLONE) [Suspect]
     Indication: ACUTE LYMPHOCYTIC LEUKAEMIA
  2. HYDRATION [Concomitant]
  3. ALLOPURINOL [Concomitant]
  4. PHOSPHATE BINDERS [Concomitant]
  5. RASBURICASE [Concomitant]

REACTIONS (1)
  - Tumour lysis syndrome [None]
